FAERS Safety Report 6369974-6 (Version None)
Quarter: 2009Q3

REPORT INFORMATION
  Report Type: 
  Country: None (occurrence: None)
  Receive Date: 20090918
  Receipt Date: 20090902
  Transmission Date: 20100115
  Serious: Yes (Hospitalization)
  Sender: FDA-Public Use
  Company Number: A-NJ2008-23158

PATIENT
  Age: 81 Year
  Sex: Female

DRUGS (13)
  1. TRACLEER [Suspect]
     Indication: PULMONARY ARTERIAL HYPERTENSION
     Dosage: 62.5 MG, BID, ORAL
     Route: 048
     Dates: start: 20081101, end: 20090601
  2. LASIX [Concomitant]
  3. DIOVAN (HYDROCHLOROTHIAZIDE, VALSARTAN) [Concomitant]
  4. PROTONIX [Concomitant]
  5. METOPROLOL (METOPROLOL) [Concomitant]
  6. NEURONTIN [Concomitant]
  7. NORVASC [Concomitant]
  8. IMDUR [Concomitant]
  9. FERROUS SULFATE TAB [Concomitant]
  10. VYTORIN [Concomitant]
  11. COUMADIN [Concomitant]
  12. COLCHICINE (COLCHICINE) [Concomitant]
  13. LOMOTIL [Concomitant]

REACTIONS (5)
  - CARDIAC FAILURE CONGESTIVE [None]
  - DIALYSIS [None]
  - FATIGUE [None]
  - PNEUMONIA [None]
  - RENAL FAILURE ACUTE [None]
